FAERS Safety Report 7014616-X (Version None)
Quarter: 2010Q3

REPORT INFORMATION
  Report Type: 
  Country: None (occurrence: None)
  Receive Date: 20100927
  Receipt Date: 20100917
  Transmission Date: 20110219
  Serious: Yes (Life-Threatening, Hospitalization, Other)
  Sender: FDA-Public Use
  Company Number: CA-ROCHE-714343

PATIENT
  Sex: Female
  Weight: 66 kg

DRUGS (3)
  1. BEVACIZUMAB [Suspect]
     Indication: BREAST CANCER
     Dosage: FORM: INFUSION
     Route: 042
     Dates: start: 20100312, end: 20100810
  2. CAPECITABINE [Suspect]
     Indication: BREAST CANCER
     Route: 048
  3. MORPHINE [Concomitant]
     Indication: PAIN

REACTIONS (12)
  - ARTHRALGIA [None]
  - ASTHENIA [None]
  - DECREASED APPETITE [None]
  - DYSPNOEA [None]
  - FATIGUE [None]
  - GAIT DISTURBANCE [None]
  - HAEMOGLOBIN DECREASED [None]
  - INFLUENZA [None]
  - NASAL DRYNESS [None]
  - PLEURAL EFFUSION [None]
  - RENAL FAILURE [None]
  - WEIGHT DECREASED [None]
